FAERS Safety Report 9343912 (Version 1)
Quarter: 2013Q2

REPORT INFORMATION
  Report Type: Spontaneous
  Country: DE (occurrence: None)
  Receive Date: 20130610
  Receipt Date: 20130610
  Transmission Date: 20140414
  Serious: Yes (Other)
  Sender: FDA-Public Use
  Company Number: 2013P1006709

PATIENT
  Sex: 0

DRUGS (4)
  1. FENTANYL [Suspect]
     Indication: ANALGESIC THERAPY
     Route: 042
  2. FENTANYL [Suspect]
     Indication: SEDATION
     Route: 042
  3. FENTANYL [Suspect]
     Indication: PROPHYLAXIS
     Route: 042
  4. MIDAZOLAM [Concomitant]

REACTIONS (1)
  - Drug withdrawal syndrome [None]
